FAERS Safety Report 11095547 (Version 1)
Quarter: 2015Q2

REPORT INFORMATION
  Report Type: Report from Study
  Country: US (occurrence: US)
  Receive Date: 20150506
  Receipt Date: 20150506
  Transmission Date: 20150821
  Serious: Yes (Hospitalization, Other)
  Sender: FDA-Public Use
  Company Number: US-GILEAD-2015-0145110

PATIENT
  Age: 46 Year
  Sex: Male
  Weight: 53 kg

DRUGS (2)
  1. ELVITEGRAVIR/EMTRICITABINE/TENOFOVIR DF/COBICISTAT [Suspect]
     Active Substance: COBICISTAT\ELVITEGRAVIR\EMTRICITABINE\TENOFOVIR
     Indication: HIV INFECTION
     Dosage: 800 MG, UNK
     Route: 048
     Dates: start: 20150106
  2. BACTRIM DS [Concomitant]
     Active Substance: SULFAMETHOXAZOLE\TRIMETHOPRIM
     Indication: PROPHYLAXIS
     Dosage: 1 DF, BID
     Route: 048
     Dates: start: 20150205

REACTIONS (4)
  - Osteomyelitis [Not Recovered/Not Resolved]
  - Intervertebral discitis [Not Recovered/Not Resolved]
  - Staphylococcal sepsis [Recovered/Resolved]
  - Extradural abscess [Not Recovered/Not Resolved]

NARRATIVE: CASE EVENT DATE: 20150125
